FAERS Safety Report 5520486-9 (Version None)
Quarter: 2007Q4

REPORT INFORMATION
  Report Type: 
  Country: None (occurrence: None)
  Receive Date: 20071119
  Receipt Date: 20071108
  Transmission Date: 20080405
  Serious: Yes (Hospitalization)
  Sender: FDA-Public Use
  Company Number: DE-ELI_LILLY_AND_COMPANY-DE200711001851

PATIENT
  Sex: Female

DRUGS (8)
  1. FORTEO [Suspect]
     Indication: OSTEOPOROSIS
     Dosage: UNK, DAILY (1/D)
     Route: 058
     Dates: start: 20061108
  2. CORTISONE ACETATE TAB [Concomitant]
  3. FOLSAN [Concomitant]
  4. IDEOS [Concomitant]
  5. MTX [Concomitant]
     Dosage: 15 MG, UNK
  6. VALORON [Concomitant]
  7. TILIDIN [Concomitant]
  8. NOVALGIN [Concomitant]

REACTIONS (7)
  - ANAEMIA [None]
  - BURSITIS [None]
  - INTERVERTEBRAL DISC PROTRUSION [None]
  - MYALGIA [None]
  - PAIN [None]
  - UPPER LIMB FRACTURE [None]
  - WEIGHT INCREASED [None]
